FAERS Safety Report 5138707-3 (Version None)
Quarter: 2006Q4

REPORT INFORMATION
  Report Type: 
  Country: None (occurrence: None)
  Receive Date: 20061030
  Receipt Date: 20061018
  Transmission Date: 20070319
  Serious: Yes (Hospitalization)
  Sender: FDA-Public Use
  Company Number: AT-ROCHE-467716

PATIENT
  Age: 48 Year
  Sex: Female
  Weight: 94 kg

DRUGS (3)
  1. CAPECITABINE [Suspect]
     Indication: BREAST CANCER
     Dosage: 1000MG/MA? GIVEN ON DAYS 1-14 OF THREE WEEK CYCLE AS PER PROTOCOL.
     Route: 048
     Dates: end: 20060921
  2. EPIRUBICIN [Suspect]
     Indication: BREAST CANCER
     Dosage: 75 MG/MA? GIVEN ON DAY 1 OF THREE WEEK CYCLE AS PER PROTOCOL.
     Route: 042
     Dates: start: 20060523
  3. DOCETAXEL [Suspect]
     Indication: BREAST CANCER
     Dosage: 75 MG/MA? GIVEN ON DAY 1 OF THREE WEEK CYCLE AS PER PROTOCOL.
     Route: 042
     Dates: start: 20060523

REACTIONS (2)
  - DEAFNESS [None]
  - SCIATICA [None]
